FAERS Safety Report 15787357 (Version 1)
Quarter: 2019Q1

REPORT INFORMATION
  Report Type: Spontaneous
  Country: US (occurrence: US)
  Receive Date: 20190103
  Receipt Date: 20190103
  Transmission Date: 20190417
  Serious: No
  Sender: FDA-Public Use
  Company Number: US-MYLANLABS-2018M1090714

PATIENT
  Age: 66 Year
  Sex: Female

DRUGS (1)
  1. DEXAMETHASONE. [Suspect]
     Active Substance: DEXAMETHASONE
     Indication: CRANIOTOMY
     Dosage: 30 TO 35 MG OF DEXAMETHASONE, FOR 4 DAYS.
     Route: 042

REACTIONS (2)
  - Tachycardia [Unknown]
  - Heart rate increased [Not Recovered/Not Resolved]
